FAERS Safety Report 8543959-3 (Version None)
Quarter: 2012Q3

REPORT INFORMATION
  Report Type: 
  Country: None (occurrence: None)
  Receive Date: 20120727
  Receipt Date: 20120717
  Transmission Date: 20120928
  Serious: Yes (Other)
  Sender: FDA-Public Use
  Company Number: US-BAYER-2012-072360

PATIENT
  Age: 66 Year
  Sex: Female
  Weight: 39 kg

DRUGS (1)
  1. PHILLIPS' LIQUID GELS STOOL SOFTENER [Suspect]
     Indication: CONSTIPATION
     Dosage: 2 DF, PRN, BOTTLE COUNT 30S
     Route: 048
     Dates: start: 20100101

REACTIONS (4)
  - CONSTIPATION [None]
  - THROAT TIGHTNESS [None]
  - APHAGIA [None]
  - NAUSEA [None]
